FAERS Safety Report 6525431-5 (Version None)
Quarter: 2010Q1

REPORT INFORMATION
  Report Type: 
  Country: None (occurrence: None)
  Receive Date: 20100104
  Receipt Date: 20091224
  Transmission Date: 20100710
  Serious: Yes (Other)
  Sender: FDA-Public Use
  Company Number: US-JNJCH-2009033088

PATIENT
  Age: 51 Year
  Sex: Female
  Weight: 95.3 kg

DRUGS (3)
  1. ZYRTEC [Suspect]
     Indication: HYPERSENSITIVITY
     Route: 048
     Dates: start: 20091213, end: 20091213
  2. LIPITOR [Concomitant]
     Indication: BLOOD CHOLESTEROL INCREASED
     Dosage: TEXT:20 MG
     Route: 065
  3. NORVASC [Concomitant]
     Indication: HYPERTENSION
     Dosage: TEXT:10 MG
     Route: 065

REACTIONS (6)
  - AURICULAR SWELLING [None]
  - DEAFNESS [None]
  - DRUG INEFFECTIVE [None]
  - EAR INFECTION [None]
  - EAR PAIN [None]
  - LOWER RESPIRATORY TRACT INFECTION [None]
